FAERS Safety Report 19092160 (Version 1)
Quarter: 2021Q2

REPORT INFORMATION
  Report Type: Spontaneous
  Country: MA (occurrence: MA)
  Receive Date: 20210405
  Receipt Date: 20210405
  Transmission Date: 20210717
  Serious: Yes (Hospitalization, Other)
  Sender: FDA-Public Use
  Company Number: MA-ACCORD-221174

PATIENT
  Age: 43 Year
  Sex: Female

DRUGS (2)
  1. METHOTREXATE. [Suspect]
     Active Substance: METHOTREXATE
     Indication: ERYTHRODERMIC PSORIASIS
     Dosage: SINGLE DOSE
  2. FOLIC ACID. [Concomitant]
     Active Substance: FOLIC ACID
     Indication: ERYTHRODERMIC PSORIASIS

REACTIONS (7)
  - Malabsorption [Recovered/Resolved]
  - Oedema peripheral [Recovered/Resolved]
  - Prothrombin time shortened [Recovered/Resolved]
  - Hypocholesterolaemia [Recovered/Resolved]
  - Normochromic normocytic anaemia [Recovered/Resolved]
  - Hypoalbuminaemia [Recovered/Resolved]
  - Blood glucose decreased [Recovered/Resolved]
